FAERS Safety Report 5959003-8 (Version None)
Quarter: 2008Q4

REPORT INFORMATION
  Report Type: 
  Country: None (occurrence: None)
  Receive Date: 20081104
  Receipt Date: 20080801
  Transmission Date: 20090506
  Serious: Yes (Other)
  Sender: FDA-Public Use
  Company Number: SPV1-2008-01643

PATIENT
  Age: 53 Year
  Sex: Female
  Weight: 53.5 kg

DRUGS (1)
  1. AGRYLIN [Suspect]
     Dosage: 0.5 MG, 1X/DAY:QD, ORAL
     Route: 048
     Dates: start: 20080616, end: 20080705

REACTIONS (10)
  - ANXIETY [None]
  - DRUG DISPENSING ERROR [None]
  - EPISTAXIS [None]
  - FEAR [None]
  - GINGIVAL BLEEDING [None]
  - HEADACHE [None]
  - HOT FLUSH [None]
  - PALPITATIONS [None]
  - TACHYCARDIA [None]
  - WRONG DRUG ADMINISTERED [None]
